FAERS Safety Report 23241881 (Version 1)
Quarter: 2023Q4

REPORT INFORMATION
  Report Type: Spontaneous
  Country: US (occurrence: None)
  Receive Date: 20231129
  Receipt Date: 20231129
  Transmission Date: 20240110
  Serious: No
  Sender: FDA-Public Use
  Company Number: None

PATIENT
  Age: 39 Year
  Sex: Male
  Weight: 60.1 kg

DRUGS (1)
  1. CABENUVA [Suspect]
     Active Substance: CABOTEGRAVIR\RILPIVIRINE
     Indication: HIV infection
     Dosage: OTHER QUANTITY : TWO 3ML INJECTIONS;?OTHER FREQUENCY : EVERY 2 MONTHS;?
     Route: 030
     Dates: start: 20230918, end: 20231031

REACTIONS (1)
  - Injection site pain [None]

NARRATIVE: CASE EVENT DATE: 20231031
